FAERS Safety Report 25949823 (Version 1)
Quarter: 2025Q4

REPORT INFORMATION
  Report Type: Spontaneous
  Country: US (occurrence: US)
  Receive Date: 20251022
  Receipt Date: 20251022
  Transmission Date: 20260117
  Serious: Yes (Other)
  Sender: IOVANCE BIOTHERAPEUTICS
  Company Number: US-IOVANCE BIOTHERAPEUTICS, INC-2025IOV000127

PATIENT

DRUGS (3)
  1. AMTAGVI [Suspect]
     Active Substance: LIFILEUCEL
     Indication: Malignant melanoma
     Dosage: UNK
     Route: 042
     Dates: start: 20250122, end: 20250122
  2. CYCLOPHOSPHAMIDE [Suspect]
     Active Substance: CYCLOPHOSPHAMIDE
     Indication: Lymphodepletion
     Dosage: UNK
     Route: 042
     Dates: start: 20250115, end: 20250116
  3. FLUDARABINE [Suspect]
     Active Substance: FLUDARABINE PHOSPHATE
     Indication: Lymphodepletion
     Dosage: UNK
     Route: 042
     Dates: start: 20250117, end: 20250121

REACTIONS (1)
  - Aplastic anaemia [Not Recovered/Not Resolved]

NARRATIVE: CASE EVENT DATE: 20250321
